FAERS Safety Report 15427559 (Version 1)
Quarter: 2018Q3

REPORT INFORMATION
  Report Type: Spontaneous
  Country: US (occurrence: US)
  Receive Date: 20180925
  Receipt Date: 20180925
  Transmission Date: 20181010
  Serious: No
  Sender: FDA-Public Use
  Company Number: PHEH2018US040373

PATIENT
  Sex: Male

DRUGS (1)
  1. TYKERB [Suspect]
     Active Substance: LAPATINIB DITOSYLATE
     Indication: RECTAL CANCER
     Dosage: 1250 MG, QD
     Route: 048
     Dates: start: 20170721

REACTIONS (4)
  - Nerve injury [Unknown]
  - Product use in unapproved indication [Unknown]
  - Sleep deficit [Unknown]
  - Dysphonia [Unknown]
